FAERS Safety Report 9652482 (Version 1)
Quarter: 2013Q4

REPORT INFORMATION
  Report Type: Report from Study
  Country: US (occurrence: US)
  Receive Date: 20131029
  Receipt Date: 20131029
  Transmission Date: 20140711
  Serious: Yes (Other)
  Sender: FDA-Public Use
  Company Number: US-ROCHE-1292891

PATIENT
  Age: 13 Year
  Sex: Male
  Weight: 32.64 kg

DRUGS (9)
  1. NUTROPIN AQ [Suspect]
     Indication: GROWTH HORMONE DEFICIENCY
     Route: 058
     Dates: start: 201210, end: 2013
  2. NUTROPIN AQ [Suspect]
     Route: 058
     Dates: end: 201308
  3. NUTROPIN AQ [Suspect]
     Route: 058
     Dates: end: 201308
  4. NUTROPIN AQ [Suspect]
     Dosage: THERAPY RESTARTED
     Route: 058
  5. MIRALAX [Concomitant]
     Route: 048
  6. PEDIASURE [Concomitant]
     Dosage: 1 CAN 1-2 TIMES DAILY
     Route: 048
  7. PREVACID SOLUTAB [Concomitant]
     Route: 048
  8. TENEX [Concomitant]
     Route: 048
  9. VYVANSE [Concomitant]
     Dosage: IN THE MORNING
     Route: 065

REACTIONS (3)
  - Chest discomfort [Unknown]
  - Headache [Unknown]
  - Contusion [Unknown]
